FAERS Safety Report 11584246 (Version 2)
Quarter: 2015Q4

REPORT INFORMATION
  Report Type: Spontaneous
  Country: IT (occurrence: IT)
  Receive Date: 20151001
  Receipt Date: 20151002
  Transmission Date: 20160304
  Serious: Yes (Other)
  Sender: FDA-Public Use
  Company Number: IT-TEVA-418649ISR

PATIENT
  Age: 87 Year
  Sex: Male

DRUGS (4)
  1. FINASTERIDE ACTAVIS [Concomitant]
  2. CARBOLITHIUM [Suspect]
     Active Substance: LITHIUM CARBONATE
     Dosage: 900 MILLIGRAM DAILY;
     Route: 048
     Dates: start: 20101026, end: 20130507
  3. URODIE [Concomitant]
  4. GASTROLOC [Concomitant]

REACTIONS (8)
  - Toxicity to various agents [Recovered/Resolved]
  - Speech disorder [Unknown]
  - Dyskinesia [Recovered/Resolved]
  - Dysarthria [Recovered/Resolved]
  - Feeling jittery [Recovered/Resolved]
  - Dysarthria [Unknown]
  - Psychomotor hyperactivity [Recovered/Resolved]
  - Dehydration [Unknown]

NARRATIVE: CASE EVENT DATE: 20130507
